FAERS Safety Report 10784857 (Version 1)
Quarter: 2015Q1

REPORT INFORMATION
  Report Type: Spontaneous
  Country: US (occurrence: US)
  Receive Date: 20150211
  Receipt Date: 20150211
  Transmission Date: 20150721
  Serious: No
  Sender: FDA-Public Use
  Company Number: US-GLAXOSMITHKLINE-A1060325A

PATIENT

DRUGS (1)
  1. LAMICTAL [Suspect]
     Active Substance: LAMOTRIGINE
     Indication: NERVOUS SYSTEM DISORDER
     Dosage: 100 MG AND 200 MG TABLETS, UNKNOWN DOSING
     Route: 065
     Dates: start: 20120526

REACTIONS (2)
  - Malaise [Unknown]
  - Drug dose omission [Unknown]
